FAERS Safety Report 14621158 (Version 1)
Quarter: 2018Q1

REPORT INFORMATION
  Report Type: Spontaneous
  Country: NL (occurrence: NL)
  Receive Date: 20180310
  Receipt Date: 20180310
  Transmission Date: 20180509
  Serious: Yes (Other)
  Sender: FDA-Public Use
  Company Number: NL-AUROBINDO-AUR-APL-2018-012730

PATIENT
  Age: 22 Year
  Sex: Female
  Weight: 82 kg

DRUGS (1)
  1. SERTRALINE AUROBINDO [Suspect]
     Active Substance: SERTRALINE HYDROCHLORIDE
     Indication: DEPRESSION
     Dosage: 1X PER DAG 50 MG
     Dates: start: 20180118, end: 20180209

REACTIONS (18)
  - Therapeutic response unexpected [Unknown]
  - Flatulence [Unknown]
  - Depression [Unknown]
  - Panic attack [Unknown]
  - Photophobia [Unknown]
  - Diarrhoea [Unknown]
  - Alopecia [Unknown]
  - Nausea [Unknown]
  - Increased appetite [Unknown]
  - Suicidal ideation [Unknown]
  - Somnolence [Unknown]
  - Headache [Unknown]
  - Restless legs syndrome [Unknown]
  - Eructation [Unknown]
  - Tremor [Unknown]
  - Dizziness [Unknown]
  - Pruritus [Unknown]
  - Libido decreased [Unknown]

NARRATIVE: CASE EVENT DATE: 20180120
